FAERS Safety Report 6879552-8 (Version None)
Quarter: 2010Q3

REPORT INFORMATION
  Report Type: 
  Country: None (occurrence: None)
  Receive Date: 20100728
  Receipt Date: 20100713
  Transmission Date: 20110219
  Serious: Yes (Hospitalization, Other)
  Sender: FDA-Public Use
  Company Number: PHHY2009CA47079

PATIENT
  Sex: Male

DRUGS (8)
  1. EXJADE [Suspect]
     Indication: MYELOFIBROSIS
     Dosage: 1250 MG DAILY
     Route: 048
     Dates: start: 20090919
  2. EXJADE [Suspect]
     Indication: IRON OVERLOAD
     Dosage: 625 MG, QD
     Route: 048
  3. ALLOPURINOL [Concomitant]
     Dosage: 300 MG DAILY
     Route: 048
  4. SYNTHROID [Concomitant]
     Dosage: 37.5 MG DAILY
     Route: 048
  5. TAMSULOSIN HCL [Concomitant]
  6. TAMSULOSIN HYDROCHLORIDE [Concomitant]
  7. FLOMAX [Concomitant]
     Dosage: 0.4 MG, UNK
     Route: 048
  8. COLACE [Concomitant]
     Dosage: 100 MG, BID
     Route: 048

REACTIONS (19)
  - BLADDER CATHETERISATION [None]
  - BLADDER SPASM [None]
  - CONSTIPATION [None]
  - DYSURIA [None]
  - FOLLICULITIS [None]
  - HAEMATURIA [None]
  - HAEMOGLOBIN DECREASED [None]
  - NEUTROPHIL COUNT INCREASED [None]
  - OEDEMA PERIPHERAL [None]
  - PAIN [None]
  - PLATELET COUNT DECREASED [None]
  - PROSTATOMEGALY [None]
  - RASH PRURITIC [None]
  - STAPHYLOCOCCAL INFECTION [None]
  - THROMBOSIS IN DEVICE [None]
  - URINARY RETENTION [None]
  - VOMITING [None]
  - WEIGHT DECREASED [None]
  - WHITE BLOOD CELL COUNT INCREASED [None]
